FAERS Safety Report 11298277 (Version 1)
Quarter: 2015Q3

REPORT INFORMATION
  Report Type: Spontaneous
  Country: US (occurrence: US)
  Receive Date: 20150722
  Receipt Date: 20150722
  Transmission Date: 20151125
  Serious: Yes (Other)
  Sender: FDA-Public Use
  Company Number: US-ELI_LILLY_AND_COMPANY-US201108003201

PATIENT
  Age: 62 Year
  Sex: Male

DRUGS (2)
  1. REOPRO [Concomitant]
     Active Substance: ABCIXIMAB
     Dosage: UNK, UNKNOWN
     Route: 065
  2. EFFIENT [Suspect]
     Active Substance: PRASUGREL HYDROCHLORIDE
     Indication: MYOCARDIAL INFARCTION
     Dosage: UNK UNK, LOADING DOSE
     Route: 065

REACTIONS (3)
  - Haemorrhage [Unknown]
  - Application site haematoma [Unknown]
  - Off label use [Unknown]
